FAERS Safety Report 5453622-3 (Version None)
Quarter: 2007Q3

REPORT INFORMATION
  Report Type: 
  Country: None (occurrence: None)
  Receive Date: 20070917
  Receipt Date: 20070910
  Transmission Date: 20080115
  Serious: Yes (Hospitalization)
  Sender: FDA-Public Use
  Company Number: PHHO2007CA09572

PATIENT
  Age: 80 Year
  Sex: Female

DRUGS (3)
  1. ZOLEDRONATE VS RISEDRONATE [Suspect]
     Indication: OSTEITIS DEFORMANS
     Dosage: EXTENDED OBSERVATION PERIOD
     Dates: start: 20030602
  2. TYLENOL (CAPLET) [Concomitant]
  3. HYDROMORPH CONTIN [Concomitant]

REACTIONS (4)
  - DISEASE PROGRESSION [None]
  - OSTEITIS DEFORMANS [None]
  - PAIN [None]
  - PELVIC PAIN [None]
